FAERS Safety Report 21057318 (Version 1)
Quarter: 2022Q3

REPORT INFORMATION
  Report Type: Spontaneous
  Country: US (occurrence: US)
  Receive Date: 20220708
  Receipt Date: 20220708
  Transmission Date: 20221026
  Serious: Yes (Other)
  Sender: FDA-Public Use
  Company Number: US-PARI RESPIRATORY EQUIPMENT, INC.-2022PAR00025

PATIENT
  Age: 26 Year
  Sex: Male
  Weight: 41.497 kg

DRUGS (13)
  1. KITABIS PAK [Suspect]
     Active Substance: TOBRAMYCIN
     Indication: Chronic obstructive pulmonary disease
     Dosage: 300 MG (5 ML) VIA PARI LC NEBULIZER, 2X/DAY FOR 28 DAYS ON AND 28 DAYS OFF
  2. KITABIS PAK [Suspect]
     Active Substance: TOBRAMYCIN
     Indication: Bacterial infection
  3. KITABIS PAK [Suspect]
     Active Substance: TOBRAMYCIN
     Indication: Bronchiectasis
  4. PREDNISONE [Concomitant]
     Active Substance: PREDNISONE
  5. VITAMINS [Concomitant]
     Active Substance: VITAMINS
  6. MUCINEX ER 12H [Concomitant]
  7. ALBUTEROL SULFATE [Concomitant]
     Active Substance: ALBUTEROL SULFATE
  8. MONTELUKAST SODIUM [Concomitant]
     Active Substance: MONTELUKAST SODIUM
  9. AZITHROMYCIN [Concomitant]
     Active Substance: AZITHROMYCIN
  10. ALBUTEROL\IPRATROPIUM [Concomitant]
     Active Substance: ALBUTEROL\IPRATROPIUM
  11. SODIUM CHLORIDE [Concomitant]
     Active Substance: SODIUM CHLORIDE
  12. SULFAMETHOXAZOLE\TRIMETHOPRIM [Concomitant]
     Active Substance: SULFAMETHOXAZOLE\TRIMETHOPRIM
     Dosage: UNK
  13. ALBUTEROL SULFATE [Concomitant]
     Active Substance: ALBUTEROL SULFATE

REACTIONS (3)
  - Infection [Unknown]
  - Dyspnoea [Recovered/Resolved]
  - Off label use [Unknown]

NARRATIVE: CASE EVENT DATE: 20220401
